FAERS Safety Report 18695356 (Version 3)
Quarter: 2021Q2

REPORT INFORMATION
  Report Type: Spontaneous
  Country: US (occurrence: US)
  Receive Date: 20210104
  Receipt Date: 20210608
  Transmission Date: 20210717
  Serious: No
  Sender: FDA-Public Use
  Company Number: US-PFIZER INC-2019305268

PATIENT
  Age: 65 Year
  Sex: Female

DRUGS (2)
  1. PREMARIN [Suspect]
     Active Substance: ESTROGENS, CONJUGATED
     Dosage: UNK (QUANTITY FOR 90 DAYS: 42 GRAMS)
  2. PREMARIN [Suspect]
     Active Substance: ESTROGENS, CONJUGATED
     Dosage: 0.5 MG, THREE TIMES A WEEK
     Route: 067

REACTIONS (4)
  - Intentional product misuse [Unknown]
  - Tremor [Unknown]
  - Off label use [Unknown]
  - Malaise [Unknown]

NARRATIVE: CASE EVENT DATE: 20210305
